FAERS Safety Report 20128423 (Version 1)
Quarter: 2021Q4

REPORT INFORMATION
  Report Type: Report from Study
  Country: UY (occurrence: UY)
  Receive Date: 20211130
  Receipt Date: 20211130
  Transmission Date: 20220303
  Serious: Yes (Other)
  Sender: FDA-Public Use
  Company Number: UY-ABBVIE-21K-168-4177852-00

PATIENT
  Sex: Female

DRUGS (1)
  1. RINVOQ [Suspect]
     Active Substance: UPADACITINIB
     Indication: Rheumatoid arthritis
     Route: 048
     Dates: start: 20210422

REACTIONS (3)
  - Intraocular pressure increased [Not Recovered/Not Resolved]
  - Ankle deformity [Not Recovered/Not Resolved]
  - Eye ulcer [Unknown]

NARRATIVE: CASE EVENT DATE: 20210101
